FAERS Safety Report 7995048-4 (Version None)
Quarter: 2011Q4

REPORT INFORMATION
  Report Type: 
  Country: None (occurrence: None)
  Receive Date: 20111220
  Receipt Date: 20111216
  Transmission Date: 20120403
  Serious: Yes (Life-Threatening, Hospitalization)
  Sender: FDA-Public Use
  Company Number: JP-PFIZER INC-2011245439

PATIENT
  Age: 60 Year
  Sex: Female
  Weight: 38 kg

DRUGS (19)
  1. PREDNISOLONE [Suspect]
     Dosage: 20 MG, 1X/DAY
     Route: 048
     Dates: start: 20110907
  2. PREDNISOLONE [Suspect]
     Dosage: 30 MG, 1X/DAY
     Route: 048
  3. LIPITOR [Concomitant]
     Indication: HYPERLIPIDAEMIA
     Dosage: 10 MG, 1X/DAY
     Route: 048
  4. PREDNISOLONE [Suspect]
     Dosage: 27.5 MG, 1X/DAY
     Route: 048
     Dates: start: 20111109
  5. PREDNISOLONE [Suspect]
     Indication: RHEUMATOID ARTHRITIS
     Dosage: 10 MG, 1X/DAY
     Route: 048
     Dates: start: 19870101
  6. PREDNISOLONE [Suspect]
     Dosage: 20 MG, 1X/DAY
     Route: 048
     Dates: start: 20110531
  7. PREDNISOLONE [Suspect]
     Dosage: 17.5 MG, 1X/DAY
     Route: 048
     Dates: start: 20111003
  8. PLAVIX [Concomitant]
     Indication: ANGINA PECTORIS
     Dosage: 75 MG, 1X/DAY
     Route: 048
  9. LASIX [Concomitant]
     Indication: HYPERTENSION
     Dosage: 20 MG, 1X/DAY
     Route: 048
  10. AZULFIDINE [Suspect]
     Indication: RHEUMATOID ARTHRITIS
     Dosage: 500 MG DAILY
     Route: 048
     Dates: start: 19780101
  11. PREDNISOLONE [Suspect]
     Dosage: 40 MG, 1X/DAY
     Route: 048
     Dates: start: 20110602
  12. PREDNISOLONE [Suspect]
     Dosage: 30 MG, 1X/DAY
     Route: 048
     Dates: start: 20110630
  13. TANATRIL ^TANABE^ [Concomitant]
     Indication: HYPERTENSION
     Dosage: 5 MG, 1X/DAY
     Route: 048
  14. CELECOXIB [Concomitant]
     Indication: RHEUMATOID ARTHRITIS
     Dosage: 100 MG, 2X/DAY
     Route: 048
  15. AZULFIDINE [Suspect]
     Dosage: 500 MG, 2X/DAY
     Route: 048
     Dates: start: 20110418, end: 20110528
  16. PREDNISOLONE [Suspect]
     Dosage: 8 MG DAILY
     Route: 048
     Dates: start: 20110517
  17. NIFEDIPINE [Concomitant]
     Indication: ANGINA PECTORIS
     Dosage: 20 MG, 2X/DAY
     Route: 048
  18. DIOVAN [Concomitant]
     Indication: HYPERTENSION
     Dosage: 80 MG, 1X/DAY
     Route: 048
  19. CYTOTEC [Concomitant]
     Indication: GASTRIC ULCER
     Dosage: 200 MG, 4X/DAY
     Route: 048

REACTIONS (3)
  - DRUG RASH WITH EOSINOPHILIA AND SYSTEMIC SYMPTOMS [None]
  - CYTOMEGALOVIRUS ENTEROCOLITIS [None]
  - PNEUMOCYSTIS JIROVECI PNEUMONIA [None]
